FAERS Safety Report 24864845 (Version 2)
Quarter: 2025Q1

REPORT INFORMATION
  Report Type: Spontaneous
  Country: US (occurrence: US)
  Receive Date: 20250121
  Receipt Date: 20250131
  Transmission Date: 20250408
  Serious: Yes (Hospitalization, Other)
  Sender: SANOFI AVENTIS
  Company Number: US-SA-2025SA017111

PATIENT
  Age: 58 Year
  Sex: Female
  Weight: 70.45 kg

DRUGS (1)
  1. DUPIXENT [Suspect]
     Active Substance: DUPILUMAB
     Indication: Eosinophilic oesophagitis
     Dosage: 300 MG, QW
     Route: 058
     Dates: end: 202404

REACTIONS (5)
  - Eosinophilic pneumonia [Unknown]
  - Choking [Unknown]
  - Chest pain [Unknown]
  - Dysphagia [Unknown]
  - Early satiety [Unknown]

NARRATIVE: CASE EVENT DATE: 20240101
